FAERS Safety Report 13523731 (Version 1)
Quarter: 2017Q2

REPORT INFORMATION
  Report Type: Spontaneous
  Country: US (occurrence: US)
  Receive Date: 20170508
  Receipt Date: 20170508
  Transmission Date: 20170830
  Serious: No
  Sender: FDA-Public Use
  Company Number: US-VIFOR (INTERNATIONAL) INC.-VIT-2017-02870

PATIENT
  Age: 77 Year
  Sex: Male

DRUGS (18)
  1. CINNAMON. [Concomitant]
     Active Substance: CINNAMON
  2. OMEPRAZOLE. [Concomitant]
     Active Substance: OMEPRAZOLE
  3. CRANBERRY. [Concomitant]
     Active Substance: CRANBERRY
  4. FAMOTIDINE. [Concomitant]
     Active Substance: FAMOTIDINE
  5. AMLODIPINE BESILATE [Concomitant]
     Active Substance: AMLODIPINE BESYLATE
  6. ASPIR-81 [Concomitant]
     Active Substance: ASPIRIN
  7. CALCIUM [Concomitant]
     Active Substance: CALCIUM
  8. CETIRIZINE HYDROCHLORIDE. [Concomitant]
     Active Substance: CETIRIZINE HYDROCHLORIDE
  9. DULERA [Concomitant]
     Active Substance: FORMOTEROL FUMARATE DIHYDRATE\MOMETASONE FUROATE
  10. SAW PALMETTO [Concomitant]
     Active Substance: HERBALS\SAW PALMETTO
  11. AVODART [Concomitant]
     Active Substance: DUTASTERIDE
  12. FISH OIL [Concomitant]
     Active Substance: FISH OIL
  13. SODIUM BICARBONATE. [Concomitant]
     Active Substance: SODIUM BICARBONATE
  14. ASCORBIC ACID. [Concomitant]
     Active Substance: ASCORBIC ACID
  15. ERGOCALCIFEROL. [Concomitant]
     Active Substance: ERGOCALCIFEROL
  16. FOLBEE [Concomitant]
     Active Substance: CYANOCOBALAMIN\FOLIC ACID\PYRIDOXINE HYDROCHLORIDE
  17. GLYBURIDE. [Concomitant]
     Active Substance: GLYBURIDE
  18. VELTASSA [Suspect]
     Active Substance: PATIROMER
     Indication: HYPERKALAEMIA
     Route: 048
     Dates: start: 20170302

REACTIONS (1)
  - Drug dose omission [Unknown]

NARRATIVE: CASE EVENT DATE: 201703
